FAERS Safety Report 16189099 (Version 1)
Quarter: 2019Q2

REPORT INFORMATION
  Report Type: Spontaneous
  Country: US (occurrence: US)
  Receive Date: 20190308
  Receipt Date: 20190308
  Transmission Date: 20190711
  Serious: Yes (Hospitalization)
  Sender: FDA-Public Use
  Company Number: None

PATIENT
  Sex: Female

DRUGS (8)
  1. PRAVASTATIN. [Concomitant]
     Active Substance: PRAVASTATIN
  2. ENBREL [Suspect]
     Active Substance: ETANERCEPT
     Indication: PSORIASIS
     Route: 058
     Dates: start: 20170314
  3. CLOBETASOL [Concomitant]
     Active Substance: CLOBETASOL
  4. DILANTIN [Concomitant]
     Active Substance: PHENYTOIN
  5. LANTUS [Concomitant]
     Active Substance: INSULIN GLARGINE
  6. LAMOTRIGINE. [Concomitant]
     Active Substance: LAMOTRIGINE
  7. KEPPRA [Concomitant]
     Active Substance: LEVETIRACETAM
  8. CELEXA [Concomitant]
     Active Substance: CITALOPRAM HYDROBROMIDE

REACTIONS (2)
  - Therapy cessation [None]
  - Staphylococcal infection [None]
